FAERS Safety Report 11113767 (Version 1)
Quarter: 2015Q2

REPORT INFORMATION
  Report Type: Spontaneous
  Country: US (occurrence: US)
  Receive Date: 20150514
  Receipt Date: 20150514
  Transmission Date: 20150821
  Serious: Yes (Hospitalization)
  Sender: FDA-Public Use
  Company Number: US-ENDO PHARMACEUTICALS INC.-201502024

PATIENT
  Age: 44 Year
  Sex: Male

DRUGS (1)
  1. TESTIM [Suspect]
     Active Substance: TESTOSTERONE
     Indication: BLOOD TESTOSTERONE DECREASED
     Route: 062
     Dates: start: 2012

REACTIONS (3)
  - Myocardial infarction [Unknown]
  - Pulmonary infarction [Unknown]
  - Deep vein thrombosis [Unknown]

NARRATIVE: CASE EVENT DATE: 20120909
